FAERS Safety Report 6718567-7 (Version None)
Quarter: 2010Q2

REPORT INFORMATION
  Report Type: 
  Country: None (occurrence: None)
  Receive Date: 20100504
  Receipt Date: 20100415
  Transmission Date: 20101027
  Serious: Yes (Other)
  Sender: FDA-Public Use
  Company Number: 7001576

PATIENT
  Age: 57 Year
  Sex: Female

DRUGS (5)
  1. REBIF [Suspect]
     Indication: MULTIPLE SCLEROSIS
     Dosage: 44 MCG, 3 IN 1 WK, SUBCUTANEOUS
     Route: 058
     Dates: start: 20070827
  2. MULTI-VITAMINS [Concomitant]
  3. LOTREL (LOTREL /01289101/) [Concomitant]
  4. SIMVASTATIN [Concomitant]
  5. ALENDRONATE SODIUM [Concomitant]

REACTIONS (2)
  - CONDITION AGGRAVATED [None]
  - OSTEONECROSIS [None]
